FAERS Safety Report 17455615 (Version 1)
Quarter: 2020Q1

REPORT INFORMATION
  Report Type: Spontaneous
  Country: US (occurrence: US)
  Receive Date: 20200225
  Receipt Date: 20200225
  Transmission Date: 20200409
  Serious: Yes (Hospitalization, Other)
  Sender: FDA-Public Use
  Company Number: None

PATIENT
  Age: 73 Year
  Sex: Male
  Weight: 116.5 kg

DRUGS (22)
  1. ROPINIROLE 0.25MG [Concomitant]
  2. NIFEDIPINE ER 90MG [Concomitant]
     Active Substance: NIFEDIPINE
  3. ISOSORBIDE DINITRATE 30MG [Concomitant]
  4. GLIPIZIDE ER [Concomitant]
     Active Substance: GLIPIZIDE
  5. CALCITRIOL 0.25MG [Concomitant]
  6. ERLEADA [Suspect]
     Active Substance: APALUTAMIDE
     Indication: PROSTATE CANCER
     Route: 048
     Dates: start: 20191003
  7. LACTULOSE 10G/15ML [Concomitant]
  8. JANUVIA [Concomitant]
     Active Substance: SITAGLIPTIN PHOSPHATE
  9. CLONIDINE 0.2MG [Concomitant]
     Active Substance: CLONIDINE
  10. PANTOPRAZOLE 40MG [Concomitant]
     Active Substance: PANTOPRAZOLE SODIUM
  11. LOSARTAN 100MG [Concomitant]
     Active Substance: LOSARTAN
  12. LISINOPRIL. [Concomitant]
     Active Substance: LISINOPRIL
  13. ASPIRIN 81MG [Concomitant]
     Active Substance: ASPIRIN
  14. OXYCODONE 10MG [Concomitant]
     Active Substance: OXYCODONE
  15. FUROSEMIDE 20MG [Concomitant]
     Active Substance: FUROSEMIDE
  16. CLOPIDOGREL [Concomitant]
     Active Substance: CLOPIDOGREL BISULFATE
  17. CARVEDILOL 25MG [Concomitant]
     Active Substance: CARVEDILOL
  18. MULTIVITAMIN [Concomitant]
     Active Substance: VITAMINS
  19. METOPROLOL TARTRATE 50MG [Concomitant]
     Active Substance: METOPROLOL TARTRATE
  20. JARDIANCE [Concomitant]
     Active Substance: EMPAGLIFLOZIN
  21. LAXATIVES [Concomitant]
     Active Substance: UNSPECIFIED INGREDIENT
  22. GINSENG [Concomitant]
     Active Substance: ASIAN GINSENG

REACTIONS (1)
  - Myocardial infarction [None]
